FAERS Safety Report 8531685-6 (Version None)
Quarter: 2012Q3

REPORT INFORMATION
  Report Type: 
  Country: None (occurrence: None)
  Receive Date: 20120723
  Receipt Date: 20120713
  Transmission Date: 20120928
  Serious: Yes (Other)
  Sender: FDA-Public Use
  Company Number: US-ASTRAZENECA-2012SE49074

PATIENT
  Age: 51 Year
  Sex: Female

DRUGS (10)
  1. SEROQUEL [Suspect]
     Indication: DEPRESSION
     Route: 048
  2. ALPRAZOLAM [Concomitant]
  3. LISINOPRIL [Suspect]
     Route: 048
  4. SEROQUEL [Suspect]
     Indication: DISSOCIATIVE IDENTITY DISORDER
     Route: 048
  5. SEROQUEL [Suspect]
     Indication: BIPOLAR I DISORDER
     Route: 048
  6. XANAX [Concomitant]
  7. SEROQUEL [Suspect]
     Indication: BIPOLAR DISORDER
     Route: 048
  8. CELEXA [Concomitant]
  9. REQUIP [Concomitant]
  10. SOLMA [Concomitant]

REACTIONS (8)
  - MENTAL DISORDER [None]
  - HALLUCINATION, AUDITORY [None]
  - ANXIETY [None]
  - CRYING [None]
  - DRUG DOSE OMISSION [None]
  - SUICIDAL IDEATION [None]
  - DEPRESSED MOOD [None]
  - HALLUCINATION, VISUAL [None]
